FAERS Safety Report 6035774-X (Version None)
Quarter: 2009Q1

REPORT INFORMATION
  Report Type: 
  Country: None (occurrence: None)
  Receive Date: 20090113
  Receipt Date: 20090102
  Transmission Date: 20090719
  Serious: Yes (Disabling)
  Sender: FDA-Public Use
  Company Number: DE-BIOGENIDEC-2008BI028114

PATIENT
  Age: 45 Year
  Sex: Female
  Weight: 95 kg

DRUGS (2)
  1. TYSABRI [Suspect]
     Indication: MULTIPLE SCLEROSIS
     Route: 042
     Dates: start: 20080702, end: 20080926
  2. VENLAFAXINE HCL [Concomitant]
     Indication: DEPRESSION
     Route: 048

REACTIONS (1)
  - SCHAMBERG'S DISEASE [None]
